FAERS Safety Report 22289861 (Version 2)
Quarter: 2023Q4

REPORT INFORMATION
  Report Type: Report from Study
  Country: US (occurrence: US)
  Receive Date: 20230505
  Receipt Date: 20231023
  Transmission Date: 20240109
  Serious: Yes (Hospitalization, Other)
  Sender: FDA-Public Use
  Company Number: US-ABBVIE-4752025

PATIENT
  Sex: Female

DRUGS (5)
  1. SKYRIZI [Suspect]
     Active Substance: RISANKIZUMAB-RZAA
     Indication: Crohn^s disease
     Route: 058
     Dates: start: 202307, end: 20230917
  2. SKYRIZI [Suspect]
     Active Substance: RISANKIZUMAB-RZAA
     Indication: Crohn^s disease
     Dosage: TIME INTERVAL: TOTAL: FREQUENCY TEXT: WEEK 4
     Route: 042
     Dates: start: 202304, end: 202304
  3. SKYRIZI [Suspect]
     Active Substance: RISANKIZUMAB-RZAA
     Indication: Crohn^s disease
     Dosage: TIME INTERVAL: TOTAL: FREQUENCY WEEK 0
     Route: 042
     Dates: start: 20230321, end: 20230321
  4. SKYRIZI [Suspect]
     Active Substance: RISANKIZUMAB-RZAA
     Indication: Crohn^s disease
     Dosage: TIME INTERVAL: TOTAL: FREQUENCY WEEK 8
     Route: 042
     Dates: start: 202305, end: 202305
  5. CLONAZEPAM [Suspect]
     Active Substance: CLONAZEPAM
     Indication: Depression
     Route: 065

REACTIONS (12)
  - Loss of consciousness [Unknown]
  - Contusion [Unknown]
  - Vomiting [Not Recovered/Not Resolved]
  - Mass [Unknown]
  - Nausea [Not Recovered/Not Resolved]
  - Obstruction [Unknown]
  - Depression [Not Recovered/Not Resolved]
  - Abdominal pain [Unknown]
  - Fall [Unknown]
  - Unevaluable event [Unknown]
  - Therapeutic product effect variable [Unknown]
  - Nausea [Recovered/Resolved]

NARRATIVE: CASE EVENT DATE: 20230101
